FAERS Safety Report 26204563 (Version 1)
Quarter: 2025Q4

REPORT INFORMATION
  Report Type: Spontaneous
  Country: EU (occurrence: EU)
  Receive Date: 20251227
  Receipt Date: 20251227
  Transmission Date: 20260118
  Serious: Yes (Hospitalization)
  Sender: AUROBINDO
  Company Number: EU-URPL-DML-MLP.4401.1.327.2025

PATIENT
  Age: 15 Year
  Sex: Male
  Weight: 59 kg

DRUGS (1)
  1. ACETAMINOPHEN [Suspect]
     Active Substance: ACETAMINOPHEN
     Indication: Product used for unknown indication
     Dosage: 50 DOSAGE FORM
     Route: 061
     Dates: start: 20251028, end: 20251028

REACTIONS (2)
  - Depressed mood [Unknown]
  - Drug level abnormal [Unknown]

NARRATIVE: CASE EVENT DATE: 20251028
